FAERS Safety Report 8571917-1 (Version None)
Quarter: 2012Q3

REPORT INFORMATION
  Report Type: 
  Country: None (occurrence: None)
  Receive Date: 20120806
  Receipt Date: 20120726
  Transmission Date: 20120928
  Serious: Yes (Other)
  Sender: FDA-Public Use
  Company Number: JP-SANOFI-AVENTIS-2012SA055076

PATIENT

DRUGS (1)
  1. DOCETAXEL [Suspect]
     Route: 042

REACTIONS (1)
  - LIVER INJURY [None]
